FAERS Safety Report 7814988-X (Version None)
Quarter: 2011Q4

REPORT INFORMATION
  Report Type: 
  Country: None (occurrence: None)
  Receive Date: 20111014
  Receipt Date: 20111004
  Transmission Date: 20120403
  Serious: Yes (Hospitalization)
  Sender: FDA-Public Use
  Company Number: US-GLAXOSMITHKLINE-A0947018A

PATIENT
  Age: 48 Year
  Sex: Female

DRUGS (12)
  1. FLU VACCINE [Suspect]
     Indication: PROPHYLAXIS
     Route: 065
     Dates: start: 20100101, end: 20100101
  2. ADVAIR DISKUS 100/50 [Concomitant]
  3. VENTOLIN [Concomitant]
  4. THEOPHYLLINE [Concomitant]
  5. EPINEPHRINE [Concomitant]
  6. FLONASE [Concomitant]
  7. SORIATANE [Suspect]
     Indication: PSORIASIS
     Route: 048
     Dates: start: 20100801, end: 20100901
  8. ZYRTEC [Concomitant]
  9. ALBUTEROL [Concomitant]
  10. SPIRONOLACTONE [Concomitant]
  11. BENADRYL [Concomitant]
  12. DIAZEPAM [Concomitant]

REACTIONS (6)
  - DERMATITIS [None]
  - PRURITUS [None]
  - HYPERSENSITIVITY [None]
  - ERYTHEMA [None]
  - SKIN DISORDER [None]
  - DRUG INTERACTION [None]
